FAERS Safety Report 6274200-2 (Version None)
Quarter: 2009Q3

REPORT INFORMATION
  Report Type: 
  Country: None (occurrence: None)
  Receive Date: 20090720
  Receipt Date: 20090720
  Transmission Date: 20100115
  Serious: Yes (Hospitalization, Other)
  Sender: FDA-Public Use
  Company Number: US-PFIZER INC-2009224166

PATIENT
  Sex: Male

DRUGS (11)
  1. ZOLOFT [Suspect]
     Indication: DEPRESSION
  2. XANAX [Suspect]
     Indication: DRUG USE FOR UNKNOWN INDICATION
     Dosage: UNK
  3. REBIF [Suspect]
     Dosage: 44 MCG 3 IN 1 WEEK
     Route: 058
     Dates: start: 20081001, end: 20090528
  4. REMERON [Suspect]
     Indication: DEPRESSION
     Dosage: UNK
     Dates: end: 20090101
  5. MOTRIN [Suspect]
     Indication: DRUG USE FOR UNKNOWN INDICATION
     Dosage: UNK
  6. KLONOPIN [Suspect]
     Indication: DEPRESSION
     Dosage: UNK
  7. KLONOPIN [Suspect]
     Indication: ANXIETY
  8. ALCOHOL [Suspect]
     Indication: DRUG USE FOR UNKNOWN INDICATION
  9. CELEXA [Concomitant]
     Indication: DEPRESSION
     Dosage: UNK
  10. SEROQUEL [Concomitant]
     Indication: DEPRESSION
     Dosage: UNK
  11. LUNESTA [Concomitant]
     Indication: SLEEP DISORDER

REACTIONS (9)
  - ANXIETY [None]
  - DEPRESSION [None]
  - DISEASE PROGRESSION [None]
  - HEMIPARESIS [None]
  - HYPOAESTHESIA [None]
  - INSOMNIA [None]
  - INTENTIONAL OVERDOSE [None]
  - INTENTIONAL SELF-INJURY [None]
  - SUICIDE ATTEMPT [None]
